FAERS Safety Report 6832422-3 (Version None)
Quarter: 2010Q3

REPORT INFORMATION
  Report Type: 
  Country: None (occurrence: None)
  Receive Date: 20100712
  Receipt Date: 20070308
  Transmission Date: 20110219
  Serious: No
  Sender: FDA-Public Use
  Company Number: US-PFIZER INC-2007020465

PATIENT
  Sex: Female
  Weight: 54.43 kg

DRUGS (7)
  1. CHANTIX [Suspect]
     Indication: SMOKING CESSATION THERAPY
     Dates: start: 20070301
  2. DURAGESIC-100 [Interacting]
     Indication: BACK PAIN
  3. ROXICODONE [Interacting]
     Indication: BACK PAIN
  4. RESTORIL [Interacting]
     Indication: SLEEP DISORDER
  5. SYNTHROID [Concomitant]
  6. COZAAR [Concomitant]
  7. NICOTINE [Concomitant]

REACTIONS (4)
  - ABNORMAL DREAMS [None]
  - BACK PAIN [None]
  - DRUG INTERACTION [None]
  - INSOMNIA [None]
